FAERS Safety Report 15270345 (Version 1)
Quarter: 2018Q3

REPORT INFORMATION
  Report Type: Spontaneous
  Country: US (occurrence: US)
  Receive Date: 20180813
  Receipt Date: 20180813
  Transmission Date: 20181010
  Serious: No
  Sender: FDA-Public Use
  Company Number: US-GALDERMA-US18027188

PATIENT
  Age: 42 Year
  Sex: Female

DRUGS (6)
  1. PROACTIV MARK CORRECTING PADS [Concomitant]
     Route: 061
     Dates: start: 20171005, end: 20180211
  2. PROACTIVPLUS SKIN SMOOTHING EXFOLIATOR [Concomitant]
     Active Substance: BENZOYL PEROXIDE
     Route: 061
     Dates: start: 20171005, end: 20180211
  3. PROACTIV MD ADAPALENE ACNE TREATMENT [Suspect]
     Active Substance: ADAPALENE
     Indication: PRODUCT USED FOR UNKNOWN INDICATION
     Dosage: 0.1%
     Route: 061
     Dates: start: 20171005, end: 20180211
  4. PROACTIV PLUS PORE TARGETING TREATMENT [Concomitant]
     Active Substance: BENZOYL PEROXIDE
     Route: 061
     Dates: start: 20171005, end: 20180211
  5. PROACTIV PLUS RETEXTURIZING TONER [Concomitant]
     Active Substance: SALICYLIC ACID
     Route: 061
     Dates: start: 20171005, end: 20180211
  6. PROACTIV PLUS COMPLEXION PERFECTING HYDRATOR [Concomitant]
     Active Substance: SALICYLIC ACID
     Route: 061
     Dates: start: 20171005, end: 20180211

REACTIONS (2)
  - Rash vesicular [Recovering/Resolving]
  - Swelling face [Recovering/Resolving]

NARRATIVE: CASE EVENT DATE: 20171226
